FAERS Safety Report 21898810 (Version 4)
Quarter: 2023Q1

REPORT INFORMATION
  Report Type: Spontaneous
  Country: US (occurrence: US)
  Receive Date: 20230123
  Receipt Date: 20230327
  Transmission Date: 20230417
  Serious: No
  Sender: FDA-Public Use
  Company Number: US-Santen Inc-2022-USA-009125

PATIENT
  Sex: Male

DRUGS (2)
  1. FLAREX [Suspect]
     Active Substance: FLUOROMETHOLONE ACETATE
     Indication: Product used for unknown indication
     Dosage: FOUR TIMES DAILY
     Route: 047
  2. FLAREX [Suspect]
     Active Substance: FLUOROMETHOLONE ACETATE
     Dosage: TWICE DAILY
     Dates: start: 20221211, end: 20221211

REACTIONS (3)
  - Product delivery mechanism issue [Unknown]
  - Incorrect dose administered by product [Unknown]
  - Product availability issue [Unknown]

NARRATIVE: CASE EVENT DATE: 20221211
